FAERS Safety Report 5149504-7 (Version None)
Quarter: 2006Q4

REPORT INFORMATION
  Report Type: 
  Country: None (occurrence: None)
  Receive Date: 20061113
  Receipt Date: 20060222
  Transmission Date: 20070319
  Serious: No
  Sender: FDA-Public Use
  Company Number: US-GLAXOSMITHKLINE-A0594790A

PATIENT
  Age: 63 Year
  Sex: Female

DRUGS (6)
  1. COREG [Suspect]
     Indication: HYPERTENSION
     Dosage: 6.25MG PER DAY
     Route: 048
     Dates: start: 20060208, end: 20060201
  2. CALCIUM [Concomitant]
  3. MAGNESIUM [Concomitant]
  4. ZINC [Concomitant]
  5. NIACIN [Concomitant]
  6. AVALIDE [Concomitant]

REACTIONS (6)
  - EYE PAIN [None]
  - HEADACHE [None]
  - INSOMNIA [None]
  - NASAL DISORDER [None]
  - SLEEP DISORDER [None]
  - SOMNOLENCE [None]
